FAERS Safety Report 18908513 (Version 1)
Quarter: 2021Q1

REPORT INFORMATION
  Report Type: Spontaneous
  Country: US (occurrence: US)
  Receive Date: 20210218
  Receipt Date: 20210218
  Transmission Date: 20210420
  Serious: No
  Sender: FDA-Public Use
  Company Number: US-SUN PHARMACEUTICAL INDUSTRIES LTD-2021R1-278531

PATIENT
  Sex: Male
  Weight: 97.52 kg

DRUGS (1)
  1. METOPROLOL. [Suspect]
     Active Substance: METOPROLOL
     Indication: BLOOD PRESSURE MEASUREMENT
     Dosage: 25 MILLIGRAM, DAILY(12.5 MG IN MORNING AND 12.5 MG AT NIGHT)
     Route: 065

REACTIONS (1)
  - Drug ineffective [Unknown]
